FAERS Safety Report 7503498-5 (Version None)
Quarter: 2011Q2

REPORT INFORMATION
  Report Type: 
  Country: None (occurrence: None)
  Receive Date: 20110525
  Receipt Date: 20110211
  Transmission Date: 20111010
  Serious: Yes (Other)
  Sender: FDA-Public Use
  Company Number: PHHY2011US12105

PATIENT
  Sex: Female

DRUGS (28)
  1. THERA TEAR [Suspect]
     Indication: DRY EYE
     Dosage: UNK, TID
  2. REFRESH OPTIV [Suspect]
     Indication: DRY EYE
     Dosage: UNK, 5 TIMES DAILY
  3. REFRESH OPTIV [Suspect]
     Indication: CORNEAL DISORDER
  4. REFRESH PLUS [Suspect]
     Indication: CORNEAL DISORDER
  5. SYSTANE [Suspect]
  6. LOTAMAX [Suspect]
     Indication: DRY EYE
     Dosage: UNK
  7. LOTAMAX [Suspect]
     Indication: EYE IRRITATION
  8. THERA TEAR [Suspect]
     Indication: EYE IRRITATION
  9. RESTASIS [Suspect]
     Dosage: UNK
  10. LOTAMAX [Suspect]
     Indication: CORNEAL DISORDER
  11. BIOTEAR [Concomitant]
     Dosage: UNK
  12. BLINK TEARS [Suspect]
     Indication: DRY EYE
     Dosage: UNK, TID
  13. MELOXICAM [Suspect]
     Indication: PAIN
     Dosage: UNK
  14. REFRESH OPTIV [Suspect]
     Indication: EYE IRRITATION
  15. REFRESH PLUS [Suspect]
     Indication: EYE IRRITATION
  16. BLINK TEARS [Suspect]
     Indication: EYE IRRITATION
  17. SYSTANE [Suspect]
     Indication: CORNEAL DISORDER
  18. GENTEAL [Suspect]
     Indication: DRY EYE
     Dosage: UNK, 5 TIMES DAILY
  19. GENTEAL [Suspect]
     Indication: EYE IRRITATION
  20. CARISOPRODOL [Suspect]
     Indication: PAIN
     Dosage: UNK
  21. SYSTANE [Suspect]
     Indication: DRY EYE
     Dosage: UNK
  22. SYSTANE [Suspect]
     Indication: EYE IRRITATION
  23. SYSTANE [Suspect]
  24. SYSTANE [Suspect]
  25. THERA TEAR [Suspect]
     Indication: CORNEAL DISORDER
  26. REFRESH PLUS [Suspect]
     Indication: DRY EYE
     Dosage: UNK
  27. BLINK TEARS [Suspect]
     Indication: CORNEAL DISORDER
  28. FISH OIL [Concomitant]
     Dosage: UNK

REACTIONS (7)
  - CORNEAL DISORDER [None]
  - WEIGHT DECREASED [None]
  - EYE SWELLING [None]
  - CORNEAL EROSION [None]
  - EYE IRRITATION [None]
  - DRY EYE [None]
  - EYELID INJURY [None]
